FAERS Safety Report 6994068-6 (Version None)
Quarter: 2010Q3

REPORT INFORMATION
  Report Type: 
  Country: None (occurrence: None)
  Receive Date: 20100917
  Receipt Date: 20100602
  Transmission Date: 20110219
  Serious: No
  Sender: FDA-Public Use
  Company Number: US-ASTRAZENECA-2010SE28346

PATIENT
  Age: 55 Year
  Sex: Female
  Weight: 117.5 kg

DRUGS (4)
  1. SEROQUEL [Suspect]
     Route: 048
     Dates: start: 20000110
  2. ZOLOFT [Concomitant]
     Dates: start: 20000110
  3. TRAZODONE HCL [Concomitant]
     Dates: start: 20000208
  4. HALOPERIDOL [Concomitant]
     Dates: start: 20000208

REACTIONS (7)
  - AMNESIA [None]
  - BLOOD GLUCOSE INCREASED [None]
  - HYPERLIPIDAEMIA [None]
  - HYPERTENSION [None]
  - RHINITIS ALLERGIC [None]
  - TYPE 2 DIABETES MELLITUS [None]
  - VITAMIN D DEFICIENCY [None]
